FAERS Safety Report 21630151 (Version 1)
Quarter: 2022Q4

REPORT INFORMATION
  Report Type: Spontaneous
  Country: None (occurrence: US)
  Receive Date: 20221122
  Receipt Date: 20221122
  Transmission Date: 20230112
  Serious: Yes (Disabling)
  Sender: FDA-Public Use
  Company Number: US-Acella Pharmaceuticals, LLC-2135173

PATIENT
  Sex: Female

DRUGS (1)
  1. NP THYROID [Suspect]
     Active Substance: LEVOTHYROXINE\LIOTHYRONINE
     Indication: Hypothyroidism
     Route: 048
     Dates: start: 2022, end: 20221019

REACTIONS (7)
  - Feeling abnormal [None]
  - Arthralgia [None]
  - Joint swelling [None]
  - Gait disturbance [None]
  - Chondrocalcinosis [None]
  - Synovial cyst [None]
  - Physical disability [None]
